FAERS Safety Report 6682300-8 (Version None)
Quarter: 2010Q2

REPORT INFORMATION
  Report Type: 
  Country: None (occurrence: None)
  Receive Date: 20100414
  Receipt Date: 20100414
  Transmission Date: 20101027
  Serious: Yes (Hospitalization)
  Sender: FDA-Public Use
  Company Number: None

PATIENT
  Sex: Female
  Weight: 58.9676 kg

DRUGS (1)
  1. FOSAMAX [Suspect]
     Indication: BLOOD CALCIUM
     Dosage: FOSOMAX DAILY 5 PLUS YEARS

REACTIONS (2)
  - FALL [None]
  - FEMUR FRACTURE [None]
